FAERS Safety Report 11092665 (Version 1)
Quarter: 2015Q2

REPORT INFORMATION
  Report Type: Spontaneous
  Country: US (occurrence: None)
  Receive Date: 20150505
  Receipt Date: 20150505
  Transmission Date: 20150821
  Serious: Yes (Disabling)
  Sender: FDA-Public Use
  Company Number: None

PATIENT
  Age: 64 Year
  Sex: Female
  Weight: 55.34 kg

DRUGS (2)
  1. MULTIVITAMIN [Concomitant]
     Active Substance: VITAMINS
  2. HARVONI [Suspect]
     Active Substance: LEDIPASVIR\SOFOSBUVIR
     Indication: HEPATITIS C
     Dosage: 1 PILL, ONCE DAILY, TAKEN BY MOUTH
     Route: 048
     Dates: start: 20141206, end: 20150302

REACTIONS (7)
  - Tinnitus [None]
  - Palpitations [None]
  - Respiratory disorder [None]
  - Emphysema [None]
  - Quality of life decreased [None]
  - Vertigo [None]
  - Chest pain [None]

NARRATIVE: CASE EVENT DATE: 20150425
